FAERS Safety Report 7179403-0 (Version None)
Quarter: 2010Q4

REPORT INFORMATION
  Report Type: 
  Country: None (occurrence: None)
  Receive Date: 20101221
  Receipt Date: 20101214
  Transmission Date: 20110411
  Serious: Yes (Other)
  Sender: FDA-Public Use
  Company Number: US-US-EMD SERONO, INC.-7023437

PATIENT
  Sex: Female
  Weight: 67 kg

DRUGS (2)
  1. REBIF [Suspect]
     Indication: MULTIPLE SCLEROSIS
     Dates: start: 20091217, end: 20100901
  2. GABAPENTIN [Concomitant]
     Dates: end: 20100901

REACTIONS (8)
  - CONTUSION [None]
  - GALLBLADDER DISORDER [None]
  - GASTRITIS [None]
  - HEPATIC ENZYME INCREASED [None]
  - HYPOAESTHESIA [None]
  - INFLUENZA LIKE ILLNESS [None]
  - OESOPHAGITIS [None]
  - SKIN DISORDER [None]
